FAERS Safety Report 5121080-4 (Version None)
Quarter: 2006Q4

REPORT INFORMATION
  Report Type: 
  Country: None (occurrence: None)
  Receive Date: 20061002
  Receipt Date: 20060919
  Transmission Date: 20070319
  Serious: Yes (Disabling)
  Sender: FDA-Public Use
  Company Number: 2006100214

PATIENT
  Age: 72 Year
  Sex: Female
  Weight: 102 kg

DRUGS (7)
  1. AROMASIN [Suspect]
     Indication: BREAST CANCER
     Dosage: 25 MG (25 MG, DAILY), ORAL
     Route: 048
     Dates: start: 20020725
  2. ASPIRIN [Concomitant]
  3. METFORMIN HCL [Concomitant]
  4. CARDURA [Concomitant]
  5. AMITRIPTYLINE HCL [Concomitant]
  6. CHLORTHALIDONE [Concomitant]
  7. ENALAPRIL MALEATE [Concomitant]

REACTIONS (10)
  - ARTERIOSCLEROSIS [None]
  - BLOOD GLUCOSE INCREASED [None]
  - CENTRAL NERVOUS SYSTEM LESION [None]
  - CEREBRAL INFARCTION [None]
  - DIZZINESS [None]
  - GAIT DISTURBANCE [None]
  - HEADACHE [None]
  - HYPOAESTHESIA ORAL [None]
  - SENSORY LOSS [None]
  - VISUAL ACUITY REDUCED [None]
